FAERS Safety Report 21324412 (Version 1)
Quarter: 2022Q3

REPORT INFORMATION
  Report Type: Spontaneous
  Country: MX (occurrence: MX)
  Receive Date: 20220912
  Receipt Date: 20220912
  Transmission Date: 20221027
  Serious: Yes (Death)
  Sender: FDA-Public Use
  Company Number: MX-BAYER-2021-202599

PATIENT
  Age: 85 Year
  Sex: Male
  Weight: 110 kg

DRUGS (1)
  1. XARELTO [Suspect]
     Active Substance: RIVAROXABAN
     Indication: Product used for unknown indication
     Dosage: 20 MG, QD
     Route: 048
     Dates: start: 20170921

REACTIONS (3)
  - COVID-19 [Fatal]
  - Atypical pneumonia [Fatal]
  - Hypertension [Fatal]
